FAERS Safety Report 21846193 (Version 2)
Quarter: 2023Q2

REPORT INFORMATION
  Report Type: Spontaneous
  Country: CZ (occurrence: CZ)
  Receive Date: 20230111
  Receipt Date: 20230411
  Transmission Date: 20230722
  Serious: Yes (Hospitalization, Other)
  Sender: FDA-Public Use
  Company Number: CZ-BRISTOL-MYERS SQUIBB COMPANY-2022-033363

PATIENT
  Age: 62 Year
  Sex: Male

DRUGS (3)
  1. NIVOLUMAB [Suspect]
     Active Substance: NIVOLUMAB
     Indication: Malignant melanoma
     Dosage: 8 CYCLES
     Dates: start: 202011, end: 202102
  2. NIVOLUMAB [Suspect]
     Active Substance: NIVOLUMAB
     Dosage: DOSE : UNAVAILABLE;     FREQ : UNAVAILABLE
     Dates: start: 20210330
  3. IPILIMUMAB [Suspect]
     Active Substance: IPILIMUMAB
     Indication: Malignant melanoma
     Dates: start: 20210330

REACTIONS (4)
  - Guillain-Barre syndrome [Unknown]
  - COVID-19 [Unknown]
  - General physical health deterioration [Unknown]
  - Asthenia [Unknown]

NARRATIVE: CASE EVENT DATE: 20210301
